FAERS Safety Report 9459207 (Version 5)
Quarter: 2013Q4

REPORT INFORMATION
  Report Type: Spontaneous
  Country: US (occurrence: US)
  Receive Date: 20130814
  Receipt Date: 20131010
  Transmission Date: 20140711
  Serious: Yes (Life-Threatening, Other)
  Sender: FDA-Public Use
  Company Number: US-GILEAD-2013-0081055

PATIENT
  Age: 59 Year
  Sex: Male

DRUGS (3)
  1. STRIBILD [Suspect]
     Indication: HIV INFECTION
     Dosage: UNK
     Dates: start: 20130822
  2. STRIBILD [Suspect]
     Dosage: UNK
     Route: 048
     Dates: start: 20130701
  3. WELLBUTRIN [Concomitant]
     Dosage: UNK
     Dates: start: 20100501

REACTIONS (3)
  - Aspartate aminotransferase increased [Recovered/Resolved]
  - Alanine aminotransferase increased [Recovered/Resolved]
  - Acute hepatitis C [Recovered/Resolved]
